FAERS Safety Report 10598182 (Version 1)
Quarter: 2014Q4

REPORT INFORMATION
  Report Type: Spontaneous
  Country: US (occurrence: US)
  Receive Date: 20141121
  Receipt Date: 20141121
  Transmission Date: 20150529
  Serious: Yes (Other)
  Sender: FDA-Public Use
  Company Number: US-BAYER-2014-169373

PATIENT
  Age: 33 Year
  Sex: Female

DRUGS (1)
  1. MIRENA [Suspect]
     Active Substance: LEVONORGESTREL
     Indication: CONTRACEPTION
     Dosage: 20 MCG/24HR, CONT
     Route: 015
     Dates: start: 20140519, end: 20141104

REACTIONS (10)
  - Genital haemorrhage [Recovering/Resolving]
  - Haemorrhagic ovarian cyst [Recovering/Resolving]
  - Migraine [Recovering/Resolving]
  - Genital haemorrhage [None]
  - Depressive symptom [Recovering/Resolving]
  - Vaginal haemorrhage [Recovering/Resolving]
  - Loss of libido [Recovering/Resolving]
  - Alopecia [Recovering/Resolving]
  - Endometriosis [Recovering/Resolving]
  - Vaginal haemorrhage [None]

NARRATIVE: CASE EVENT DATE: 2014
